FAERS Safety Report 7507711-X (Version None)
Quarter: 2011Q2

REPORT INFORMATION
  Report Type: 
  Country: None (occurrence: None)
  Receive Date: 20110527
  Receipt Date: 20110523
  Transmission Date: 20111010
  Serious: No
  Sender: FDA-Public Use
  Company Number: US-BIOGENIDEC-2010BI033297

PATIENT
  Age: 42 Year
  Sex: Female

DRUGS (1)
  1. TYSABRI [Suspect]
     Indication: MULTIPLE SCLEROSIS
     Route: 042
     Dates: start: 20100920

REACTIONS (9)
  - BALANCE DISORDER [None]
  - FATIGUE [None]
  - RIB FRACTURE [None]
  - MUSCLE FATIGUE [None]
  - MUSCULOSKELETAL STIFFNESS [None]
  - ASTHENIA [None]
  - MOBILITY DECREASED [None]
  - FALL [None]
  - HEADACHE [None]
